FAERS Safety Report 15883617 (Version 1)
Quarter: 2019Q1

REPORT INFORMATION
  Report Type: Spontaneous
  Country: US (occurrence: US)
  Receive Date: 20190128
  Receipt Date: 20190128
  Transmission Date: 20190417
  Serious: Yes (Other)
  Sender: FDA-Public Use
  Company Number: None

PATIENT
  Sex: Female

DRUGS (9)
  1. OXYGEN THERAPY [Concomitant]
     Active Substance: OXYGEN
  2. SILDENFIL [Concomitant]
  3. EXCEDRINS [Concomitant]
  4. TYVASO [Suspect]
     Active Substance: TREPROSTINIL
     Indication: PULMONARY HYPERTENSION
     Dosage: ?          QUANTITY:1 PUFF(S);?
     Route: 055
     Dates: start: 20190123, end: 20190127
  5. FUROSEMIDE. [Concomitant]
     Active Substance: FUROSEMIDE
  6. HYDRALAZINE [Concomitant]
     Active Substance: HYDRALAZINE HYDROCHLORIDE
  7. SPIRIVA [Concomitant]
     Active Substance: TIOTROPIUM BROMIDE MONOHYDRATE
  8. TRAMADOL. [Concomitant]
     Active Substance: TRAMADOL
  9. ADVAIR HFA [Concomitant]
     Active Substance: FLUTICASONE PROPIONATE\SALMETEROL XINAFOATE

REACTIONS (5)
  - Diarrhoea [None]
  - Arthralgia [None]
  - Pain in jaw [None]
  - Throat tightness [None]
  - Lung disorder [None]
